FAERS Safety Report 5447242-4 (Version None)
Quarter: 2007Q3

REPORT INFORMATION
  Report Type: 
  Country: None (occurrence: None)
  Receive Date: 20070910
  Receipt Date: 20070827
  Transmission Date: 20080115
  Serious: Yes (Death, Other)
  Sender: FDA-Public Use
  Company Number: US-BAYER-200715136GDS

PATIENT
  Age: 78 Year
  Sex: Male

DRUGS (11)
  1. ASPIRIN [Suspect]
     Indication: MYOCARDIAL ISCHAEMIA
     Route: 048
     Dates: start: 20060509, end: 20060916
  2. SOTALOL HCL [Suspect]
     Indication: ATRIAL FLUTTER
     Dosage: TOTAL DAILY DOSE: 80 MG  UNIT DOSE: 80 MG
     Route: 048
     Dates: start: 20060416, end: 20060916
  3. LANIRAPID [Concomitant]
     Indication: DRUG USE FOR UNKNOWN INDICATION
     Route: 048
     Dates: start: 20060413, end: 20060916
  4. LASIX [Concomitant]
     Indication: DRUG USE FOR UNKNOWN INDICATION
     Route: 048
     Dates: start: 20060414, end: 20060916
  5. ALDACTONE [Concomitant]
     Indication: DRUG USE FOR UNKNOWN INDICATION
     Route: 048
     Dates: start: 20060414, end: 20060916
  6. TICLOPIDINE HCL [Concomitant]
     Indication: DRUG USE FOR UNKNOWN INDICATION
     Route: 048
     Dates: start: 20060509, end: 20060916
  7. SIGMART [Concomitant]
     Indication: DRUG USE FOR UNKNOWN INDICATION
     Route: 048
     Dates: start: 20060523, end: 20060916
  8. WARFARIN SODIUM [Concomitant]
     Indication: DRUG USE FOR UNKNOWN INDICATION
     Route: 048
     Dates: start: 20060415, end: 20060423
  9. WARFARIN SODIUM [Concomitant]
     Route: 048
     Dates: start: 20060424, end: 20060501
  10. WARFARIN SODIUM [Concomitant]
     Route: 048
     Dates: start: 20060502, end: 20060522
  11. WARFARIN SODIUM [Concomitant]
     Route: 048
     Dates: start: 20060523, end: 20060916

REACTIONS (4)
  - ACUTE MYOCARDIAL INFARCTION [None]
  - DUODENAL ULCER HAEMORRHAGE [None]
  - VENTRICULAR FIBRILLATION [None]
  - VENTRICULAR TACHYCARDIA [None]
